FAERS Safety Report 23048927 (Version 1)
Quarter: 2023Q4

REPORT INFORMATION
  Report Type: Spontaneous
  Country: FR (occurrence: FR)
  Receive Date: 20231010
  Receipt Date: 20231010
  Transmission Date: 20240109
  Serious: Yes (Death, Life-Threatening, Other)
  Sender: FDA-Public Use
  Company Number: None

PATIENT
  Age: 56 Year
  Sex: Female
  Weight: 60.2 kg

DRUGS (3)
  1. METHOTREXATE [Suspect]
     Active Substance: METHOTREXATE
     Indication: Neoplasm malignant
     Dosage: METHOTREXATE 3000 MG/M2 OR 4700 MG ON D1
     Dates: start: 20221213, end: 20221213
  2. CYTARABINE [Suspect]
     Active Substance: CYTARABINE
     Indication: Neoplasm malignant
     Dosage: CYTARABINE 2000 MG/M2 OR 3200 MG ON D1 AND D2
     Dates: start: 20221213, end: 20221214
  3. DOXORUBICIN [Suspect]
     Active Substance: DOXORUBICIN
     Indication: Breast cancer
     Dosage: CUMULATIVE DOSE OF DOXORUBICIN - 500 MG/M2
     Dates: start: 2020, end: 202211

REACTIONS (3)
  - Bone marrow failure [Fatal]
  - Mucormycosis [Fatal]
  - Cardiogenic shock [Fatal]

NARRATIVE: CASE EVENT DATE: 20221222
